FAERS Safety Report 5059247-6 (Version None)
Quarter: 2006Q2

REPORT INFORMATION
  Report Type: 
  Country: None (occurrence: None)
  Receive Date: 20060629
  Receipt Date: 20060420
  Transmission Date: 20061013
  Serious: No
  Sender: FDA-Public Use
  Company Number: PHEH2006US05229

PATIENT
  Age: 87 Year
  Sex: Male

DRUGS (1)
  1. ENABLEX [Suspect]
     Indication: HYPERTONIC BLADDER
     Dosage: 7.5 MG, QD
     Dates: start: 20060301

REACTIONS (1)
  - DRUG INEFFECTIVE [None]
